FAERS Safety Report 10600562 (Version 1)
Quarter: 2014Q4

REPORT INFORMATION
  Report Type: Spontaneous
  Country: CN (occurrence: CN)
  Receive Date: 20141124
  Receipt Date: 20141124
  Transmission Date: 20150529
  Serious: Yes (Other)
  Sender: FDA-Public Use
  Company Number: CN-CIPLA LTD.-2014CN01989

PATIENT

DRUGS (5)
  1. L-ASPARAGINASE [Suspect]
     Active Substance: ASPARAGINASE
     Indication: LYMPHOMA
     Dosage: 10,000 U/M2 ON DAYS 1-5
  2. OXALIPLATIN. [Suspect]
     Active Substance: OXALIPLATIN
     Indication: LYMPHOMA
     Dosage: 100 MG/M2 ON DAY 1
  3. GEMCITABINE [Suspect]
     Active Substance: GEMCITABINE\GEMCITABINE HYDROCHLORIDE
     Indication: LYMPHOMA
     Dosage: 1,000 MG/M2ON DAY 1
  4. RADIOTHERAPY [Suspect]
     Active Substance: RADIATION THERAPY
     Indication: LYMPHOMA
     Dosage: DAILY FRACTION OF 2.0 GY
  5. DEXAMETHASONE. [Suspect]
     Active Substance: DEXAMETHASONE
     Indication: LYMPHOMA
     Dosage: 20 MG B.I.D.) ON DAYS 1-4

REACTIONS (4)
  - Decreased appetite [Unknown]
  - Nervous system disorder [Unknown]
  - Vomiting [Unknown]
  - Embolism [Unknown]
